FAERS Safety Report 16364013 (Version 1)
Quarter: 2019Q2

REPORT INFORMATION
  Report Type: Report from Study
  Country: DE (occurrence: DE)
  Receive Date: 20190528
  Receipt Date: 20190528
  Transmission Date: 20190711
  Serious: Yes (Hospitalization)
  Sender: FDA-Public Use
  Company Number: DE-MYLANLABS-2019M1049493

PATIENT
  Age: 54 Year
  Sex: Male

DRUGS (15)
  1. LEPONEX [Suspect]
     Active Substance: CLOZAPINE
     Dosage: 75 MILLIGRAM, QD
     Route: 048
     Dates: start: 20010622, end: 20010622
  2. LEPONEX [Suspect]
     Active Substance: CLOZAPINE
     Dosage: 25 MILLIGRAM, QD
     Route: 048
     Dates: start: 20010626, end: 20010628
  3. ARUTIMOL [Concomitant]
     Indication: PRODUCT USED FOR UNKNOWN INDICATION
     Dosage: 2 GTT DROPS, QD
     Dates: start: 20010513
  4. LEPONEX [Suspect]
     Active Substance: CLOZAPINE
     Dosage: 100 MILLIGRAM, QD
     Route: 048
     Dates: start: 20010718
  5. SOLIAN [Suspect]
     Active Substance: AMISULPRIDE
     Dosage: 200 MILLIGRAM, QD
     Route: 048
     Dates: start: 20010624, end: 20010625
  6. SOLIAN [Suspect]
     Active Substance: AMISULPRIDE
     Indication: PRODUCT USED FOR UNKNOWN INDICATION
     Dosage: 800 MILLIGRAM, QD
     Route: 048
     Dates: start: 20010606, end: 20010612
  7. SOLIAN [Suspect]
     Active Substance: AMISULPRIDE
     Dosage: 100 MILLIGRAM, QD
     Route: 048
     Dates: start: 20010624, end: 20010628
  8. BELOC ZOK [Concomitant]
     Active Substance: METOPROLOL SUCCINATE
     Indication: PRODUCT USED FOR UNKNOWN INDICATION
     Dosage: 48 MILLIGRAM, QD
     Route: 048
     Dates: start: 20010516
  9. LEPONEX [Suspect]
     Active Substance: CLOZAPINE
     Dosage: 75 MILLIGRAM, QD
     Route: 048
     Dates: start: 20010702, end: 20010717
  10. LEPONEX [Suspect]
     Active Substance: CLOZAPINE
     Dosage: 50 MILLIGRAM, QD
     Route: 048
     Dates: start: 20010621, end: 20010621
  11. SOLIAN [Suspect]
     Active Substance: AMISULPRIDE
     Dosage: 1000 MILLIGRAM, QD
     Route: 048
     Dates: start: 20010613, end: 20010620
  12. LEPONEX [Suspect]
     Active Substance: CLOZAPINE
     Indication: SCHIZOAFFECTIVE DISORDER
     Dosage: 75 MILLIGRAM, QD
     Route: 048
     Dates: start: 20010620, end: 20010620
  13. LEPONEX [Suspect]
     Active Substance: CLOZAPINE
     Dosage: 100 MILLIGRAM, QD
     Route: 048
     Dates: start: 20010623, end: 20010623
  14. LEPONEX [Suspect]
     Active Substance: CLOZAPINE
     Dosage: 50 MILLIGRAM, QD
     Route: 048
     Dates: start: 20010629, end: 20010701
  15. SOLIAN [Suspect]
     Active Substance: AMISULPRIDE
     Dosage: 800 MILLIGRAM, QD
     Route: 048
     Dates: start: 20010621, end: 20010623

REACTIONS (5)
  - Disorientation [Recovered/Resolved]
  - Distractibility [Recovered/Resolved]
  - Restlessness [Recovered/Resolved]
  - Hallucination [Recovered/Resolved]
  - Delirium [Recovered/Resolved]

NARRATIVE: CASE EVENT DATE: 20010622
